FAERS Safety Report 8010375-2 (Version None)
Quarter: 2011Q4

REPORT INFORMATION
  Report Type: 
  Country: None (occurrence: None)
  Receive Date: 20111228
  Receipt Date: 20111221
  Transmission Date: 20120403
  Serious: Yes (Other)
  Sender: FDA-Public Use
  Company Number: DE-ASTELLAS-2011US008677

PATIENT
  Sex: Male

DRUGS (2)
  1. TARCEVA [Suspect]
     Dosage: 100 MG, UNKNOWN/D
     Route: 048
  2. TARCEVA [Suspect]
     Indication: LUNG NEOPLASM MALIGNANT
     Dosage: 150 MG, UNKNOWN/D
     Route: 048
     Dates: start: 20110101

REACTIONS (3)
  - SUICIDAL IDEATION [None]
  - RASH [None]
  - PRURITUS [None]
